FAERS Safety Report 5671713-9 (Version None)
Quarter: 2008Q1

REPORT INFORMATION
  Report Type: 
  Country: None (occurrence: None)
  Receive Date: 20080314
  Receipt Date: 20080305
  Transmission Date: 20080703
  Serious: Yes (Other)
  Sender: FDA-Public Use
  Company Number: CHPA2008US02869

PATIENT
  Age: 4 Year
  Sex: Female

DRUGS (1)
  1. TRIAMINIC VAPOR PATCH UNKNOWN (NCH)(MENTHOL, CAMPHOR) TRANS-THERAPEUTI [Suspect]
     Indication: COUGH
     Dosage: 1 DF, ONCE/SINGLE, INHALATION
     Route: 055
     Dates: start: 20080211, end: 20080212

REACTIONS (3)
  - APPLICATION SITE EROSION [None]
  - APPLICATION SITE IRRITATION [None]
  - PHARMACEUTICAL PRODUCT COMPLAINT [None]
